FAERS Safety Report 15006900 (Version 1)
Quarter: 2018Q2

REPORT INFORMATION
  Report Type: Spontaneous
  Country: US (occurrence: US)
  Receive Date: 20180526
  Receipt Date: 20180526
  Transmission Date: 20180711
  Serious: Yes (Hospitalization, Other)
  Sender: FDA-Public Use
  Company Number: None

PATIENT
  Age: 14 Month
  Sex: Male
  Weight: 13.05 kg

DRUGS (1)
  1. ORAJEL TEETHING (HOMEOPATHIC) [Suspect]
     Active Substance: HOMEOPATHICS
     Indication: TOOTHACHE
     Dosage: ?          QUANTITY:1 1;?
     Route: 048
     Dates: start: 20180504, end: 20180513

REACTIONS (8)
  - Pyrexia [None]
  - Stomatitis [None]
  - Vomiting [None]
  - Dyspnoea [None]
  - Decreased appetite [None]
  - Skin discolouration [None]
  - Unresponsive to stimuli [None]
  - Oxygen saturation decreased [None]

NARRATIVE: CASE EVENT DATE: 20180504
